FAERS Safety Report 7162203-5 (Version None)
Quarter: 2010Q4

REPORT INFORMATION
  Report Type: 
  Country: None (occurrence: None)
  Receive Date: 20101215
  Receipt Date: 20090916
  Transmission Date: 20110411
  Serious: Yes (Other)
  Sender: FDA-Public Use
  Company Number: FI-PFIZER INC-2009224502

PATIENT
  Age: 42 Year

DRUGS (14)
  1. LYRICA [Suspect]
     Dosage: UNK
     Route: 048
  2. LYRICA [Suspect]
     Dosage: 75 MG, 2X/DAY
     Route: 048
  3. LYRICA [Suspect]
     Dosage: 900 MG, DAILY
     Route: 048
  4. TRILEPTAL [Concomitant]
     Dosage: UNK
     Route: 048
  5. CYMBALTA [Concomitant]
     Dosage: 60 MG, 1X/DAY
     Route: 048
  6. MIRTAZAPINE [Concomitant]
     Dosage: 30 MG, 1X/DAY
     Route: 048
  7. OXYCONTIN [Concomitant]
     Dosage: 10 MG, AS NEEDED
     Route: 048
  8. LANSOPRAZOL [Concomitant]
     Route: 048
  9. PRIMPERAN TAB [Concomitant]
     Dosage: 10 MG, 1 - 3 TIMES DAILY
  10. AMLODIPINE [Concomitant]
     Route: 048
  11. MONTELUKAST SODIUM [Concomitant]
     Route: 048
  12. PREDNISOLONE [Concomitant]
     Dosage: 10 MG, 1X/DAY
     Route: 048
  13. VENTOLIN [Concomitant]
     Route: 055
  14. FLUTICASONE PROPIONATE [Concomitant]
     Route: 055

REACTIONS (2)
  - RENAL TUBULAR DISORDER [None]
  - WEIGHT INCREASED [None]
